FAERS Safety Report 10803770 (Version 1)
Quarter: 2015Q1

REPORT INFORMATION
  Report Type: Spontaneous
  Country: AU (occurrence: AU)
  Receive Date: 20150217
  Receipt Date: 20150217
  Transmission Date: 20150721
  Serious: Yes (Other)
  Sender: FDA-Public Use
  Company Number: AU-MYLANLABS-2015M1004854

PATIENT

DRUGS (4)
  1. TOPIRAMATE. [Suspect]
     Active Substance: TOPIRAMATE
     Dosage: 50 MG, BID
     Route: 065
  2. PHENELZINE [Suspect]
     Active Substance: PHENELZINE
     Indication: ANTIDEPRESSANT THERAPY
     Dosage: 45 MG DAILY
     Route: 065
  3. FLUDROCORTISONE [Suspect]
     Active Substance: FLUDROCORTISONE
     Dosage: 0.2 MG, BID
     Route: 065
  4. FLUDROCORTISONE [Suspect]
     Active Substance: FLUDROCORTISONE
     Indication: ORTHOSTATIC HYPOTENSION
     Dosage: 0.1 MG/DAY; INCREASING BY 0.1MG/WEEK
     Route: 065

REACTIONS (2)
  - Orthostatic hypotension [Recovering/Resolving]
  - Cataract subcapsular [Unknown]
